FAERS Safety Report 9166714 (Version 1)
Quarter: 2013Q1

REPORT INFORMATION
  Report Type: Spontaneous
  Country: ES (occurrence: ES)
  Receive Date: 20130316
  Receipt Date: 20130316
  Transmission Date: 20140127
  Serious: Yes (Other)
  Sender: FDA-Public Use
  Company Number: ES-ACCORD-016838

PATIENT
  Sex: 0

DRUGS (2)
  1. TACROLIMUS [Suspect]
     Indication: IMMUNOSUPPRESSION
     Route: 064
  2. AZATHIOPRINE [Suspect]
     Indication: IMMUNOSUPPRESSION
     Route: 064

REACTIONS (2)
  - Cardiac hypertrophy [Recovered/Resolved]
  - Premature baby [Unknown]
